FAERS Safety Report 7809164-0 (Version None)
Quarter: 2011Q4

REPORT INFORMATION
  Report Type: 
  Country: None (occurrence: None)
  Receive Date: 20111006
  Receipt Date: 20110921
  Transmission Date: 20120403
  Serious: Yes (Other)
  Sender: FDA-Public Use
  Company Number: 201111279

PATIENT
  Age: 3 Year
  Sex: Female

DRUGS (1)
  1. BACLOFEN [Suspect]
     Dosage: UNC MCG, DAILY, INTRATHECAL

REACTIONS (2)
  - DEVICE DAMAGE [None]
  - DEVICE COMPONENT ISSUE [None]
